FAERS Safety Report 14918118 (Version 1)
Quarter: 2018Q2

REPORT INFORMATION
  Report Type: Spontaneous
  Country: US (occurrence: US)
  Receive Date: 20180502
  Receipt Date: 20180502
  Transmission Date: 20180711
  Serious: No
  Sender: FDA-Public Use
  Company Number: None

PATIENT
  Age: 50 Year
  Sex: Female

DRUGS (1)
  1. TREMFYA [Suspect]
     Active Substance: GUSELKUMAB

REACTIONS (6)
  - Secretion discharge [None]
  - Fatigue [None]
  - Pyrexia [None]
  - Upper respiratory tract infection [None]
  - Lung infection [None]
  - Cough [None]

NARRATIVE: CASE EVENT DATE: 20180502
